FAERS Safety Report 15665285 (Version 3)
Quarter: 2020Q4

REPORT INFORMATION
  Report Type: Spontaneous
  Country: US (occurrence: US)
  Receive Date: 20181128
  Receipt Date: 20201127
  Transmission Date: 20210113
  Serious: No
  Sender: FDA-Public Use
  Company Number: US-PERRIGO-18US006028

PATIENT
  Age: 56 Year
  Sex: Male
  Weight: 83.9 kg

DRUGS (6)
  1. OTHER OPHTHALMOLOGICALS [Concomitant]
     Active Substance: UNSPECIFIED INGREDIENT
     Indication: GLAUCOMA
     Dosage: UNK
     Route: 047
  2. VITAMINS NOS [Concomitant]
     Active Substance: VITAMINS
     Indication: SUPPLEMENTATION THERAPY
     Dosage: UNK
     Route: 065
  3. LATANOPROST. [Concomitant]
     Active Substance: LATANOPROST
     Indication: GLAUCOMA
     Dosage: UNK
     Route: 065
  4. NICOTINE POLACRILEX [Suspect]
     Active Substance: NICOTINE
     Dosage: 4 MG, 10 TO 12 TIMES DAILY
     Route: 002
     Dates: start: 2018, end: 20200425
  5. LIPID MODIFYING AGENTS [Concomitant]
     Active Substance: UNSPECIFIED INGREDIENT
     Indication: BLOOD CHOLESTEROL INCREASED
     Dosage: UNK
     Route: 065
  6. NICOTINE POLACRILEX [Suspect]
     Active Substance: NICOTINE
     Indication: SMOKING CESSATION THERAPY
     Dosage: 4 MG, 8 TO 12 TIMES DAILY
     Route: 002
     Dates: start: 2018

REACTIONS (10)
  - Dyspepsia [Recovering/Resolving]
  - Paraesthesia oral [Recovered/Resolved]
  - Gastrooesophageal reflux disease [Recovering/Resolving]
  - Glossitis [Recovered/Resolved]
  - Throat irritation [Not Recovered/Not Resolved]
  - Cough [Recovering/Resolving]
  - Tongue disorder [Not Recovered/Not Resolved]
  - Nausea [Not Recovered/Not Resolved]
  - Nicotine dependence [Recovered/Resolved]
  - Abdominal distension [Recovering/Resolving]

NARRATIVE: CASE EVENT DATE: 201805
